FAERS Safety Report 25223086 (Version 1)
Quarter: 2025Q2

REPORT INFORMATION
  Report Type: Spontaneous
  Country: SG (occurrence: SG)
  Receive Date: 20250422
  Receipt Date: 20250422
  Transmission Date: 20250717
  Serious: Yes (Other)
  Sender: TAKEDA
  Company Number: SG-teijin-202501585_FE_P_1

PATIENT
  Age: 82 Year
  Sex: Male

DRUGS (3)
  1. FEBUXOSTAT [Suspect]
     Active Substance: FEBUXOSTAT
     Indication: Product used for unknown indication
  2. BENZBROMARONE [Suspect]
     Active Substance: BENZBROMARONE
     Indication: Product used for unknown indication
  3. PROBENECID [Suspect]
     Active Substance: PROBENECID
     Indication: Product used for unknown indication

REACTIONS (1)
  - Rash pruritic [Unknown]

NARRATIVE: CASE EVENT DATE: 20250101
